FAERS Safety Report 8924457 (Version 1)
Quarter: 2012Q4

REPORT INFORMATION
  Report Type: 
  Country: JP (occurrence: JP)
  Receive Date: 20121127
  Receipt Date: 20121127
  Transmission Date: 20130627
  Serious: Yes (Life-Threatening, Other)
  Sender: FDA-Public Use
  Company Number: JP-009507513-2011SP055090

PATIENT
  Age: 79 Year
  Sex: Male

DRUGS (1)
  1. ESLAX [Suspect]
     Dosage: 50mg/5.0ml
     Route: 042
     Dates: start: 201001, end: 201001

REACTIONS (3)
  - Cardiac arrest [Unknown]
  - Hypoxic-ischaemic encephalopathy [Unknown]
  - Respiratory depression [Unknown]
